FAERS Safety Report 4601520-7 (Version None)
Quarter: 2005Q1

REPORT INFORMATION
  Report Type: 
  Country: None (occurrence: None)
  Receive Date: 20050308
  Receipt Date: 20050127
  Transmission Date: 20050727
  Serious: Yes (Hospitalization, Other)
  Sender: FDA-Public Use
  Company Number: PHBS2005JP01500

PATIENT
  Age: 49 Year
  Sex: Female

DRUGS (9)
  1. VEGETAMIN B [Suspect]
     Indication: DEPRESSION
     Dosage: 10 TABLETS/D
     Route: 048
  2. TOFRANIL [Suspect]
     Indication: DEPRESSION
     Dosage: 25 MG/D
     Route: 048
  3. TOFRANIL [Suspect]
     Dosage: 250 MG/D (10 TABLETS)
     Route: 048
  4. AMOXAN [Concomitant]
     Indication: DEPRESSION
     Route: 048
  5. SENIRAN [Concomitant]
     Indication: DEPRESSION
     Route: 048
  6. SULPIRIDE [Concomitant]
     Route: 048
  7. AMITRIPTYLINE HCL [Concomitant]
     Indication: DEPRESSION
     Route: 048
  8. ROHYPNOL [Concomitant]
     Indication: DEPRESSION
     Route: 048
  9. FEMAS [Concomitant]
     Route: 048

REACTIONS (5)
  - DEPRESSED LEVEL OF CONSCIOUSNESS [None]
  - LOSS OF CONSCIOUSNESS [None]
  - MULTIPLE DRUG OVERDOSE [None]
  - OVERDOSE [None]
  - RESPIRATORY FAILURE [None]
